FAERS Safety Report 20616793 (Version 46)
Quarter: 2025Q4

REPORT INFORMATION
  Report Type: Spontaneous
  Country: US (occurrence: US)
  Receive Date: 20220321
  Receipt Date: 20251208
  Transmission Date: 20260117
  Serious: Yes (Other)
  Sender: PFIZER
  Company Number: US-PFIZER INC-202200359979

PATIENT
  Age: 67 Year
  Sex: Female
  Weight: 81.633 kg

DRUGS (11)
  1. IBRANCE [Suspect]
     Active Substance: PALBOCICLIB
     Indication: Breast cancer metastatic
     Dosage: ONCE A DAY, 3 WKS ON, 1 WK OFF 28 DAY CYCLE
     Route: 048
     Dates: start: 2021
  2. IBRANCE [Suspect]
     Active Substance: PALBOCICLIB
     Dosage: 100 MG
     Dates: start: 20210902
  3. IBRANCE [Suspect]
     Active Substance: PALBOCICLIB
     Dosage: 100 MG
     Dates: start: 202201
  4. IBRANCE [Suspect]
     Active Substance: PALBOCICLIB
     Dosage: TAKES 1 A DAY FOR 3 WEEKS, OFF 1 WEEK THEN, BACK ON AGAIN
  5. IBRANCE [Suspect]
     Active Substance: PALBOCICLIB
     Dosage: 100 MG
     Dates: start: 20230123
  6. IBRANCE [Suspect]
     Active Substance: PALBOCICLIB
     Dosage: DAILY FOR 252 DAYS TAKE ON DAYS 1-21 OF EACH 28 DAY CYCLE
     Route: 048
     Dates: start: 20241104
  7. IBRANCE [Suspect]
     Active Substance: PALBOCICLIB
     Dosage: 100 MG TABLET 21 DAYS ON 7 DAYS OFF
  8. IBRANCE [Suspect]
     Active Substance: PALBOCICLIB
     Dosage: 100 MG
  9. IBRANCE [Suspect]
     Active Substance: PALBOCICLIB
     Dosage: 75 MG
  10. IBRANCE [Suspect]
     Active Substance: PALBOCICLIB
     Dosage: 100MG TABLET
  11. LETROZOLE [Concomitant]
     Active Substance: LETROZOLE
     Dosage: UNK
     Route: 048
     Dates: start: 202008

REACTIONS (32)
  - Suicidal ideation [Unknown]
  - Oxygen saturation decreased [Unknown]
  - Type 2 diabetes mellitus [Not Recovered/Not Resolved]
  - Cholecystectomy [Unknown]
  - Metastases to lung [Recovering/Resolving]
  - Therapeutic response unexpected [Unknown]
  - Hair growth abnormal [Unknown]
  - Alopecia [Unknown]
  - Madarosis [Recovering/Resolving]
  - Heart rate decreased [Unknown]
  - Infection [Unknown]
  - Malaise [Unknown]
  - Full blood count decreased [Unknown]
  - Hypersensitivity [Unknown]
  - Illness [Not Recovered/Not Resolved]
  - Brain fog [Unknown]
  - Dyspnoea [Unknown]
  - Insomnia [Not Recovered/Not Resolved]
  - Feeding disorder [Unknown]
  - Eye swelling [Recovering/Resolving]
  - Arthropod bite [Recovering/Resolving]
  - Disturbance in attention [Unknown]
  - Impaired driving ability [Unknown]
  - Gait disturbance [Unknown]
  - Hair colour changes [Not Recovered/Not Resolved]
  - Tremor [Not Recovered/Not Resolved]
  - Feeling cold [Unknown]
  - Stress [Unknown]
  - Somnolence [Unknown]
  - Fatigue [Unknown]
  - Influenza [Unknown]
  - Nasopharyngitis [Unknown]
